FAERS Safety Report 10267028 (Version 1)
Quarter: 2014Q2

REPORT INFORMATION
  Report Type: Spontaneous
  Country: US (occurrence: None)
  Receive Date: 20140625
  Receipt Date: 20140625
  Transmission Date: 20141212
  Serious: Yes (Disabling, Other)
  Sender: FDA-Public Use
  Company Number: None

PATIENT
  Age: 38 Year
  Sex: Male
  Weight: 81.65 kg

DRUGS (3)
  1. LEVAQUIN [Suspect]
     Indication: NEPHROLITHIASIS
     Route: 042
     Dates: start: 20130912, end: 20130912
  2. LEVAQUIN [Suspect]
     Indication: PREOPERATIVE CARE
     Route: 042
     Dates: start: 20130912, end: 20130912
  3. CIPROFLOXACIN [Suspect]
     Indication: PROSTATE INFECTION
     Route: 048
     Dates: start: 20131121, end: 20131227

REACTIONS (26)
  - Groin pain [None]
  - No therapeutic response [None]
  - White blood cell count increased [None]
  - Muscle tightness [None]
  - Insomnia [None]
  - Neuropathy peripheral [None]
  - Tinnitus [None]
  - Cognitive disorder [None]
  - Suicidal ideation [None]
  - Depression [None]
  - Depersonalisation [None]
  - Fatigue [None]
  - Dry mouth [None]
  - Dry eye [None]
  - Ear disorder [None]
  - Temperature intolerance [None]
  - Peripheral coldness [None]
  - Sweat gland disorder [None]
  - Gastrointestinal motility disorder [None]
  - Impaired work ability [None]
  - Insomnia [None]
  - Gait disturbance [None]
  - Impaired self-care [None]
  - Family stress [None]
  - Stress [None]
  - Tendon disorder [None]
